FAERS Safety Report 5445667-4 (Version None)
Quarter: 2007Q3

REPORT INFORMATION
  Report Type: 
  Country: None (occurrence: None)
  Receive Date: 20070906
  Receipt Date: 20070906
  Transmission Date: 20080115
  Serious: Yes (Other)
  Sender: FDA-Public Use
  Company Number: LU-GENENTECH-244724

PATIENT

DRUGS (4)
  1. RITUXAN [Suspect]
     Indication: DRUG USE FOR UNKNOWN INDICATION
     Dosage: UNK MG, 1/WEEK
     Route: 042
  2. PARACETAMOL [Concomitant]
     Indication: PROPHYLAXIS
     Dosage: 1 G, UNK
  3. POLARAMINE [Concomitant]
     Indication: PROPHYLAXIS
  4. ALLOPURINOL [Concomitant]
     Indication: PROPHYLAXIS
     Dosage: 200 MG, UNK

REACTIONS (2)
  - ANGIOEDEMA [None]
  - CARDIAC ARREST [None]
